FAERS Safety Report 9353985 (Version 1)
Quarter: 2013Q2

REPORT INFORMATION
  Report Type: Other
  Country: DK (occurrence: DK)
  Receive Date: 20130618
  Receipt Date: 20130618
  Transmission Date: 20140414
  Serious: Yes (Life-Threatening, Hospitalization, Disabling, Other)
  Sender: FDA-Public Use
  Company Number: DK-ACTAVIS-2013-11109

PATIENT
  Age: 31 Year
  Sex: Female
  Weight: 82 kg

DRUGS (5)
  1. TRAMADOL HYDROCHLORIDE (UNKNOWN) [Suspect]
     Indication: PRODUCT USED FOR UNKNOWN INDICATION
     Route: 065
  2. DICLON [Suspect]
     Indication: BACK PAIN
     Dosage: UNK
     Route: 065
     Dates: start: 20040429, end: 20040429
  3. SEROXAT [Suspect]
     Indication: ANXIETY
     Dosage: ONE 30 MG TABLET, UNK
     Route: 065
     Dates: start: 20020701
  4. MERCILON [Suspect]
     Indication: CONTRACEPTION
     Dosage: UNK
     Route: 065
     Dates: start: 20040425, end: 20040527
  5. AKARIN [Concomitant]
     Indication: DEPRESSION
     Dosage: 40 MG, DAILY
     Route: 065

REACTIONS (11)
  - Cardiac arrest [Recovered/Resolved]
  - Restlessness [Unknown]
  - Hyperhidrosis [Unknown]
  - Headache [Unknown]
  - Weight increased [Unknown]
  - Palpitations [Unknown]
  - Paraesthesia [Unknown]
  - Chest pain [Unknown]
  - Back pain [Unknown]
  - Acute myocardial infarction [Unknown]
  - Serotonin syndrome [Unknown]
